FAERS Safety Report 6710513-5 (Version None)
Quarter: 2010Q2

REPORT INFORMATION
  Report Type: 
  Country: None (occurrence: None)
  Receive Date: 20100504
  Receipt Date: 20100427
  Transmission Date: 20101027
  Serious: Yes (Other)
  Sender: FDA-Public Use
  Company Number: US-GILEAD-2010-0028807

PATIENT
  Sex: Female
  Weight: 79.5 kg

DRUGS (7)
  1. LETAIRIS [Suspect]
     Indication: PULMONARY ARTERIAL HYPERTENSION
     Route: 048
     Dates: start: 20080911
  2. LASIX [Concomitant]
  3. EFFEXOR [Concomitant]
  4. XANAX [Concomitant]
  5. PROTONIX [Concomitant]
  6. PREDNISONE [Concomitant]
  7. VITAMIN D [Concomitant]

REACTIONS (1)
  - PLEURAL EFFUSION [None]
